FAERS Safety Report 5496986-7 (Version None)
Quarter: 2007Q4

REPORT INFORMATION
  Report Type: 
  Country: None (occurrence: None)
  Receive Date: 20071023
  Receipt Date: 20071011
  Transmission Date: 20080405
  Serious: Yes (Hospitalization)
  Sender: FDA-Public Use
  Company Number: 2005US001443

PATIENT
  Age: 47 Year
  Sex: Male

DRUGS (10)
  1. PROGRAF [Suspect]
     Indication: PROPHYLAXIS AGAINST TRANSPLANT REJECTION
     Dosage: 6.00 MG, BID, ORAL
     Route: 048
     Dates: start: 20050728
  2. MYCOPHENOLATE MOFETIL [Suspect]
     Indication: PROPHYLAXIS AGAINST TRANSPLANT REJECTION
     Dosage: 500.00 MG, BID, ORAL
     Route: 048
     Dates: start: 20050728
  3. MEDROL [Suspect]
     Indication: PROPHYLAXIS AGAINST TRANSPLANT REJECTION
     Dosage: 4.00 MG, BID, ORAL
     Route: 048
     Dates: start: 20050728
  4. BACTRIM (TRIEMTHOPRIM) [Concomitant]
  5. CALCITRIOL [Concomitant]
  6. CIPRO [Concomitant]
  7. GANCICLOVIR [Concomitant]
  8. METOPROLOL TARTRATE [Concomitant]
  9. NEXIUM [Concomitant]
  10. ALBUTEROL (SALBUTAMOL SULFATE) [Concomitant]

REACTIONS (1)
  - FLUID OVERLOAD [None]
